FAERS Safety Report 20657713 (Version 7)
Quarter: 2022Q3

REPORT INFORMATION
  Report Type: Spontaneous
  Country: US (occurrence: US)
  Receive Date: 20220331
  Receipt Date: 20220808
  Transmission Date: 20221027
  Serious: Yes (Other)
  Sender: FDA-Public Use
  Company Number: US-BRISTOL-MYERS SQUIBB COMPANY-2022-011837

PATIENT
  Age: 79 Year
  Sex: Female
  Weight: 55.5 kg

DRUGS (8)
  1. POMALYST [Suspect]
     Active Substance: POMALIDOMIDE
     Indication: Plasma cell myeloma
     Route: 048
     Dates: start: 20210527
  2. POMALYST [Suspect]
     Active Substance: POMALIDOMIDE
     Dosage: DOSE : 2MG;     FREQ : 21 DAYS ON 7 DAYS OFF
     Route: 048
     Dates: start: 20200527
  3. POMALYST [Suspect]
     Active Substance: POMALIDOMIDE
     Dosage: 1 CAPSULE BEFORE BREAKFAST FOR 21 DAYS ON AND 7 DAYS OFF.
     Route: 048
     Dates: start: 20220317
  4. POMALYST [Suspect]
     Active Substance: POMALIDOMIDE
     Dosage: DAILY FOR 14 DAYS, THEN 7 DAYS OFF
     Route: 048
     Dates: start: 20210927
  5. DEXAMETHASONE [Concomitant]
     Active Substance: DEXAMETHASONE
     Indication: Product used for unknown indication
     Route: 048
  6. BENADRYL [Concomitant]
     Active Substance: DIPHENHYDRAMINE HYDROCHLORIDE
     Indication: Product used for unknown indication
     Route: 048
  7. DARZALEX [Concomitant]
     Active Substance: DARATUMUMAB
     Indication: Product used for unknown indication
     Route: 042
  8. FUROSEMIDE [Concomitant]
     Active Substance: FUROSEMIDE
     Indication: Product used for unknown indication
     Route: 048

REACTIONS (6)
  - Diverticulitis [Unknown]
  - Neutropenia [Recovered/Resolved with Sequelae]
  - White blood cell count increased [Recovering/Resolving]
  - Vomiting [Unknown]
  - Diarrhoea [Unknown]
  - Pain [Unknown]

NARRATIVE: CASE EVENT DATE: 20200527
